FAERS Safety Report 10504711 (Version 1)
Quarter: 2014Q4

REPORT INFORMATION
  Report Type: Spontaneous
  Country: US (occurrence: None)
  Receive Date: 20141002
  Receipt Date: 20141002
  Transmission Date: 20150528
  Serious: Yes (Hospitalization, Other)
  Sender: FDA-Public Use
  Company Number: PHEH2014US012945

PATIENT
  Age: 67 Year
  Sex: Male

DRUGS (3)
  1. AFINITOR [Suspect]
     Active Substance: EVEROLIMUS
     Indication: URINARY TRACT NEOPLASM
     Dates: start: 20140602
  2. INSULIN [Concomitant]
     Active Substance: INSULIN NOS
  3. AFINITOR [Suspect]
     Active Substance: EVEROLIMUS
     Dates: start: 20140602

REACTIONS (2)
  - Blood glucose increased [None]
  - Pyrexia [None]
